FAERS Safety Report 8589068-9 (Version None)
Quarter: 2012Q2

REPORT INFORMATION
  Report Type: 
  Country: None (occurrence: None)
  Receive Date: 20120423
  Receipt Date: 20090706
  Transmission Date: 20120825
  Serious: Yes (Hospitalization, Other)
  Sender: FDA-Public Use
  Company Number: PHEH2009US07021

PATIENT
  Age: 80 Year
  Sex: Female

DRUGS (1)
  1. FEMARA [Suspect]
     Indication: RENAL CANCER
     Dosage: 2.5 MG, QD
     Dates: start: 20090401

REACTIONS (2)
  - NEPHRECTOMY [None]
  - NEOPLASM MALIGNANT [None]
